FAERS Safety Report 6602654-8 (Version None)
Quarter: 2010Q1

REPORT INFORMATION
  Report Type: 
  Country: None (occurrence: None)
  Receive Date: 20100218
  Receipt Date: 20100208
  Transmission Date: 20100710
  Serious: Yes (Other)
  Sender: FDA-Public Use
  Company Number: 236573J08USA

PATIENT
  Age: 60 Year
  Sex: Female

DRUGS (4)
  1. REBIF [Suspect]
     Indication: MULTIPLE SCLEROSIS
     Dosage: 44 MCG, 3 IN 1 WEEKS, SUBCUTANEOUS
     Route: 058
     Dates: start: 20060710
  2. URSODIOL [Concomitant]
  3. WELCHOL [Concomitant]
  4. TYLENOL [Concomitant]

REACTIONS (7)
  - BASEDOW'S DISEASE [None]
  - DIPLOPIA [None]
  - ENDOCRINE OPHTHALMOPATHY [None]
  - EYELID PTOSIS [None]
  - FATIGUE [None]
  - TREMOR [None]
  - WEIGHT DECREASED [None]
